FAERS Safety Report 25124327 (Version 3)
Quarter: 2025Q2

REPORT INFORMATION
  Report Type: Spontaneous
  Country: JP (occurrence: JP)
  Receive Date: 20250326
  Receipt Date: 20250526
  Transmission Date: 20250717
  Serious: Yes (Other)
  Sender: AMGEN
  Company Number: JP-AMGEN-JPNSP2025054960

PATIENT
  Age: 74 Year
  Sex: Male

DRUGS (3)
  1. EVENITY [Suspect]
     Active Substance: ROMOSOZUMAB-AQQG
     Indication: Osteoporosis
     Route: 058
     Dates: start: 20250122, end: 2025
  2. CALONAL [Concomitant]
     Active Substance: ACETAMINOPHEN
  3. Loxonin pap [Concomitant]

REACTIONS (3)
  - Renal impairment [Unknown]
  - Hydronephrosis [Recovered/Resolved]
  - Benign prostatic hyperplasia [Unknown]

NARRATIVE: CASE EVENT DATE: 20250101
